FAERS Safety Report 25061081 (Version 1)
Quarter: 2025Q1

REPORT INFORMATION
  Report Type: Spontaneous
  Country: US (occurrence: US)
  Receive Date: 20250310
  Receipt Date: 20250310
  Transmission Date: 20250408
  Serious: No
  Sender: SANDOZ
  Company Number: US-SANDOZ-SDZ2025US014552

PATIENT
  Sex: Female
  Weight: 40 kg

DRUGS (1)
  1. ASPIRIN\BUTALBITAL\CAFFEINE [Suspect]
     Active Substance: ASPIRIN\BUTALBITAL\CAFFEINE
     Indication: Migraine
     Route: 048

REACTIONS (3)
  - Gastrointestinal pain [Unknown]
  - Product prescribing error [Unknown]
  - Product after taste [Unknown]
